FAERS Safety Report 6464495-4 (Version None)
Quarter: 2009Q4

REPORT INFORMATION
  Report Type: 
  Country: None (occurrence: None)
  Receive Date: 20091124
  Receipt Date: 20091109
  Transmission Date: 20100525
  Serious: Yes (Hospitalization)
  Sender: FDA-Public Use
  Company Number: JPI-P-009116

PATIENT
  Age: 44 Year
  Sex: Female
  Weight: 79.3795 kg

DRUGS (15)
  1. XYREM [Suspect]
     Indication: NARCOLEPSY
     Dosage: 2.5 GM (1.25 GM, 2 IN 1 D), ORAL; 4.5 GM (2.25 GM, 2 IN 1 D), ORAL
     Route: 048
     Dates: start: 20090501, end: 20090901
  2. XYREM [Suspect]
     Indication: NARCOLEPSY
     Dosage: 2.5 GM (1.25 GM, 2 IN 1 D), ORAL; 4.5 GM (2.25 GM, 2 IN 1 D), ORAL
     Route: 048
     Dates: start: 20090901
  3. TRIAMTERENE AND HYDROCHLOROTHIAZIDE [Suspect]
     Indication: FLUID RETENTION
     Dosage: 25 MG (25 MG, 1 IN 1 D)
     Dates: end: 20091001
  4. TRIAMTERENE AND HYDROCHLOROTHIAZIDE [Suspect]
     Indication: SWELLING
     Dosage: 25 MG (25 MG, 1 IN 1 D)
     Dates: end: 20091001
  5. CALCIUM WITH VITAMIN D [Concomitant]
  6. DIAZEPAM [Concomitant]
  7. OXYCODONE [Concomitant]
  8. FOLIC ACID [Concomitant]
  9. PREDNISONE [Concomitant]
  10. ETANERCEPT [Concomitant]
  11. IPRAPROTROPIUM BROMIDE AND ALBUTEROL SULFATE [Concomitant]
  12. METHADONE [Concomitant]
  13. LEVOTHYROXINE SODIUM [Concomitant]
  14. DICLOFENAC SODIUM [Concomitant]
  15. POTASSIUM [Concomitant]

REACTIONS (2)
  - BLOOD POTASSIUM DECREASED [None]
  - CARDIAC FLUTTER [None]
